FAERS Safety Report 6854836-8 (Version None)
Quarter: 2010Q3

REPORT INFORMATION
  Report Type: 
  Country: None (occurrence: None)
  Receive Date: 20100717
  Receipt Date: 20080311
  Transmission Date: 20110219
  Serious: No
  Sender: FDA-Public Use
  Company Number: US-PFIZER INC-2008004267

PATIENT
  Weight: 69.4 kg

DRUGS (7)
  1. CHANTIX [Suspect]
     Indication: SMOKING CESSATION THERAPY
     Route: 048
     Dates: start: 20071201, end: 20071201
  2. BUSPAR [Concomitant]
  3. CYMBALTA [Concomitant]
  4. MICARDIS [Concomitant]
     Indication: HYPERTENSION
  5. MAXAIR [Concomitant]
     Indication: HYPERTENSION
  6. TUSSIONEX ^PENNWALT^ [Concomitant]
     Indication: BRONCHITIS CHRONIC
  7. TUSSIONEX ^PENNWALT^ [Concomitant]
     Indication: CHRONIC OBSTRUCTIVE PULMONARY DISEASE

REACTIONS (5)
  - DIARRHOEA [None]
  - GASTROENTERITIS [None]
  - MUSCLE SPASMS [None]
  - SLEEP DISORDER [None]
  - VISION BLURRED [None]
